FAERS Safety Report 22664576 (Version 1)
Quarter: 2023Q2

REPORT INFORMATION
  Report Type: Spontaneous
  Country: US (occurrence: None)
  Receive Date: 20230630
  Receipt Date: 20230630
  Transmission Date: 20230722
  Serious: Yes (unspecified)
  Sender: FDA-Public Use
  Company Number: None

PATIENT
  Age: 5 Day
  Sex: 0
  Weight: 3.5 kg

DRUGS (1)
  1. GAMMAGARD [Suspect]
     Active Substance: HUMAN IMMUNOGLOBULIN G
     Dosage: OTHER FREQUENCY : ONCE;?
     Route: 041
     Dates: start: 20230405, end: 20230405

REACTIONS (2)
  - Haemolysis [None]
  - Anaemia [None]

NARRATIVE: CASE EVENT DATE: 20230405
